FAERS Safety Report 7731370-4 (Version None)
Quarter: 2011Q3

REPORT INFORMATION
  Report Type: 
  Country: None (occurrence: None)
  Receive Date: 20110906
  Receipt Date: 20110830
  Transmission Date: 20111222
  Serious: Yes (Life-Threatening, Other)
  Sender: FDA-Public Use
  Company Number: FR-PFIZER INC-2011175554

PATIENT
  Age: 57 Year
  Sex: Male

DRUGS (9)
  1. ETOPOSIDE [Suspect]
     Dosage: UNK
     Dates: start: 20080601, end: 20080601
  2. ONCOVIN [Suspect]
     Indication: MANTLE CELL LYMPHOMA
     Dosage: UNK
     Route: 042
     Dates: start: 20070101, end: 20070101
  3. ALKERAN [Suspect]
     Dosage: UNK
     Dates: start: 20080601, end: 20080601
  4. CYTARABINE [Suspect]
     Indication: MANTLE CELL LYMPHOMA
     Dosage: UNK
     Dates: start: 20080601, end: 20080601
  5. DOXORUBICIN HCL [Suspect]
     Indication: MANTLE CELL LYMPHOMA
     Dosage: UNK
     Route: 042
     Dates: start: 20070101, end: 20070101
  6. CYCLOPHOSPHAMIDE [Suspect]
     Dosage: UNK
     Route: 042
     Dates: start: 20070101, end: 20070601
  7. BICNU [Suspect]
     Dosage: UNK
     Route: 042
     Dates: start: 20080601, end: 20080601
  8. MABTHERA [Suspect]
     Indication: MANTLE CELL LYMPHOMA
     Dosage: UNK
     Route: 042
     Dates: start: 20070101, end: 20070101
  9. PREDNISONE [Suspect]
     Indication: MANTLE CELL LYMPHOMA
     Dosage: UNK
     Dates: start: 20070101, end: 20070101

REACTIONS (7)
  - REFRACTORY ANAEMIA WITH AN EXCESS OF BLASTS [None]
  - ACUTE MYELOID LEUKAEMIA [None]
  - DISEASE PROGRESSION [None]
  - MANTLE CELL LYMPHOMA [None]
  - NEOPLASM MALIGNANT [None]
  - PANCYTOPENIA [None]
  - MYELOFIBROSIS [None]
